FAERS Safety Report 6085855-X (Version None)
Quarter: 2009Q1

REPORT INFORMATION
  Report Type: 
  Country: None (occurrence: None)
  Receive Date: 20090220
  Receipt Date: 20090217
  Transmission Date: 20090719
  Serious: Yes (Hospitalization)
  Sender: FDA-Public Use
  Company Number: B0558805A

PATIENT
  Age: 60 Year
  Sex: Female
  Weight: 99 kg

DRUGS (5)
  1. TOPOTECAN [Suspect]
     Dosage: 1.75MGM2 CYCLIC
     Route: 042
     Dates: start: 20090114
  2. PACLITAXEL [Suspect]
     Dosage: 70MGM2 CYCLIC
     Route: 042
     Dates: start: 20090114
  3. CLEXANE [Concomitant]
     Indication: PROPHYLAXIS
     Dosage: 80MG PER DAY
     Route: 048
     Dates: start: 20090116
  4. FENTANYL [Concomitant]
     Indication: PAIN
     Dosage: 100UG PER DAY
     Dates: start: 20090129
  5. NOVALGIN [Concomitant]
     Indication: PAIN
     Dosage: 40MG FOUR TIMES PER DAY
     Route: 048
     Dates: start: 20090128

REACTIONS (1)
  - GENERAL PHYSICAL HEALTH DETERIORATION [None]
